FAERS Safety Report 8997837 (Version 2)
Quarter: 2013Q2

REPORT INFORMATION
  Report Type: Spontaneous
  Country: GB (occurrence: GB)
  Receive Date: 20130104
  Receipt Date: 20130523
  Transmission Date: 20140414
  Serious: Yes (Hospitalization)
  Sender: FDA-Public Use
  Company Number: GB-GLAXOSMITHKLINE-B0851028A

PATIENT
  Age: 45 Year
  Sex: Female

DRUGS (3)
  1. MOTRIN [Suspect]
     Indication: ARTHRITIS
     Dosage: 1200MG PER DAY
     Route: 048
  2. CLOZARIL [Suspect]
     Indication: SCHIZOPHRENIA
     Route: 048
     Dates: start: 20010925, end: 20011024
  3. PAROXETINE [Suspect]
     Indication: DEPRESSION
     Route: 048

REACTIONS (11)
  - Hepatitis [Recovered/Resolved]
  - Hyperglycaemia [Recovered/Resolved]
  - Diarrhoea [Recovered/Resolved]
  - Dehydration [Recovered/Resolved]
  - Hypomania [Recovered/Resolved]
  - Hepatic function abnormal [Recovered/Resolved]
  - Alanine aminotransferase increased [Recovering/Resolving]
  - Blood alkaline phosphatase increased [Recovering/Resolving]
  - Gamma-glutamyltransferase increased [Recovering/Resolving]
  - Asthenia [Recovering/Resolving]
  - Blood glucose increased [Unknown]
